FAERS Safety Report 8887106 (Version 7)
Quarter: 2013Q2

REPORT INFORMATION
  Report Type: Spontaneous
  Country: JP (occurrence: JP)
  Receive Date: 20121105
  Receipt Date: 20130401
  Transmission Date: 20140414
  Serious: Yes (Hospitalization)
  Sender: FDA-Public Use
  Company Number: JP-ROCHE-1150621

PATIENT
  Age: 76 Year
  Sex: Female

DRUGS (4)
  1. DORMICUM (UNSPEC) [Suspect]
     Indication: PRODUCT USED FOR UNKNOWN INDICATION
     Route: 042
     Dates: start: 20121019, end: 20121022
  2. CEFAMEZIN [Suspect]
     Indication: URINARY TRACT INFECTION
     Route: 042
  3. ANEXATE [Suspect]
     Indication: DEPRESSED LEVEL OF CONSCIOUSNESS
     Dosage: 1-1.5 MG
     Route: 065
     Dates: start: 20121020, end: 201210
  4. MEROPEN [Suspect]
     Indication: PRODUCT USED FOR UNKNOWN INDICATION
     Route: 042

REACTIONS (4)
  - Pharyngeal oedema [Recovered/Resolved]
  - Blood pressure decreased [Recovered/Resolved]
  - Altered state of consciousness [Recovered/Resolved]
  - Delirium [Recovered/Resolved]
